FAERS Safety Report 9257137 (Version 3)
Quarter: 2018Q3

REPORT INFORMATION
  Report Type: Spontaneous
  Country: US (occurrence: US)
  Receive Date: 20130426
  Receipt Date: 20180829
  Transmission Date: 20181010
  Serious: Yes (Hospitalization, Disabling, Other)
  Sender: FDA-Public Use
  Company Number: US-ASTRAZENECA-2013SE27698

PATIENT
  Age: 36 Year
  Sex: Male

DRUGS (13)
  1. POTASSIUM CHLORIDE. [Concomitant]
     Active Substance: POTASSIUM CHLORIDE
     Dates: start: 20101020, end: 20120411
  2. AVODART [Concomitant]
     Active Substance: DUTASTERIDE
     Dates: start: 20101020, end: 20120317
  3. NEXIUM [Suspect]
     Active Substance: ESOMEPRAZOLE MAGNESIUM
     Indication: GASTROOESOPHAGEAL REFLUX DISEASE
     Dosage: TWO TIMES A DAY
     Route: 048
     Dates: start: 1996, end: 2012
  4. HYDROCODONE [Concomitant]
     Active Substance: HYDROCODONE
     Indication: PAIN
     Dosage: 10?650 MG EVERY 4 ? 6 HOURS
  5. NASONEX [Concomitant]
     Active Substance: MOMETASONE FUROATE
  6. PRAVASTATIN SODIUM. [Concomitant]
     Active Substance: PRAVASTATIN SODIUM
  7. AMLODIPINE BESYLATE. [Concomitant]
     Active Substance: AMLODIPINE BESYLATE
     Dates: start: 20110118, end: 20120130
  8. NEXIUM [Suspect]
     Active Substance: ESOMEPRAZOLE MAGNESIUM
     Indication: GASTROOESOPHAGEAL REFLUX DISEASE
     Route: 048
     Dates: start: 20030926
  9. ASPIRIN. [Concomitant]
     Active Substance: ASPIRIN
     Dates: start: 20101020, end: 20101119
  10. ZOLPIDEM [Concomitant]
     Active Substance: ZOLPIDEM\ZOLPIDEM TARTRATE
  11. TEMAZEPAM. [Concomitant]
     Active Substance: TEMAZEPAM
  12. FISH OIL [Concomitant]
     Active Substance: FISH OIL
  13. PREDNISONE. [Concomitant]
     Active Substance: PREDNISONE

REACTIONS (21)
  - Head injury [Unknown]
  - Bone disorder [Unknown]
  - Back disorder [Unknown]
  - Chondritis [Unknown]
  - Atrial fibrillation [Unknown]
  - Osteoporosis [Unknown]
  - Osteoarthritis [Unknown]
  - Osteochondritis [Unknown]
  - Multiple fractures [Unknown]
  - Arrhythmia [Unknown]
  - Cerebral disorder [Unknown]
  - Fall [Unknown]
  - Arthropathy [Unknown]
  - Osteoarthritis [Unknown]
  - Osteonecrosis [Unknown]
  - Blood magnesium decreased [Unknown]
  - Arthralgia [Unknown]
  - Heart rate increased [Unknown]
  - Arthritis [Unknown]
  - Memory impairment [Unknown]
  - Osteochondrosis [Unknown]

NARRATIVE: CASE EVENT DATE: 2002
